FAERS Safety Report 9947436 (Version 1)
Quarter: 2014Q1

REPORT INFORMATION
  Report Type: Spontaneous
  Country: US (occurrence: US)
  Receive Date: 20140303
  Receipt Date: 20140303
  Transmission Date: 20141002
  Serious: Yes (Other)
  Sender: FDA-Public Use
  Company Number: US-ABBVIE-13P-163-1060555-00

PATIENT
  Age: 14 Year
  Sex: Male
  Weight: 53.12 kg

DRUGS (5)
  1. HUMIRA [Suspect]
     Indication: COLITIS ULCERATIVE
     Dates: start: 20130227, end: 20130227
  2. HUMIRA [Suspect]
     Dosage: 2ND DAY LOADING DOSE - WILL BE DOING 1 40 MG EVERY 2 WEEKS STARTING ON DAY 15.
     Route: 058
     Dates: start: 20130228
  3. PREDNISONE [Concomitant]
     Indication: PRODUCT USED FOR UNKNOWN INDICATION
     Route: 048
  4. IRON (OTC) [Concomitant]
     Indication: PRODUCT USED FOR UNKNOWN INDICATION
     Route: 048
  5. PROMETHAZINE (PHENERGAN) [Concomitant]
     Indication: NAUSEA

REACTIONS (11)
  - Chest pain [Recovered/Resolved]
  - Headache [Not Recovered/Not Resolved]
  - Pain [Not Recovered/Not Resolved]
  - Chills [Not Recovered/Not Resolved]
  - Night sweats [Not Recovered/Not Resolved]
  - Nausea [Not Recovered/Not Resolved]
  - Influenza like illness [Not Recovered/Not Resolved]
  - Off label use [Not Recovered/Not Resolved]
  - Hypophagia [Recovering/Resolving]
  - Fluid intake reduced [Recovering/Resolving]
  - Lethargy [Recovering/Resolving]
